FAERS Safety Report 5748644-9 (Version None)
Quarter: 2008Q2

REPORT INFORMATION
  Report Type: 
  Country: None (occurrence: None)
  Receive Date: 20080523
  Receipt Date: 20080516
  Transmission Date: 20081010
  Serious: Yes (Other)
  Sender: FDA-Public Use
  Company Number: JP-PFIZER INC-2008043834

PATIENT
  Sex: Female

DRUGS (1)
  1. ATARAX [Suspect]
     Route: 030

REACTIONS (2)
  - INJECTION SITE INDURATION [None]
  - INJECTION SITE NECROSIS [None]
